FAERS Safety Report 9500648 (Version 1)
Quarter: 2013Q3

REPORT INFORMATION
  Report Type: Spontaneous
  Country: US (occurrence: US)
  Receive Date: 20130905
  Receipt Date: 20130905
  Transmission Date: 20140515
  Serious: Yes (Other)
  Sender: FDA-Public Use
  Company Number: US-PFIZER INC-2013255772

PATIENT
  Age: 49 Year
  Sex: Male
  Weight: 68.03 kg

DRUGS (5)
  1. LYRICA [Suspect]
     Indication: FIBROMYALGIA
     Dosage: 25 MG, 2X/DAY
     Dates: start: 2004
  2. LYRICA [Suspect]
     Dosage: 50 MG, 2X/DAY
  3. LYRICA [Suspect]
     Dosage: 25 MG, 2X/DAY
     Dates: start: 2013
  4. KLONOPIN [Concomitant]
     Indication: POST-TRAUMATIC STRESS DISORDER
     Dosage: UNK
  5. SYNTHROID [Concomitant]
     Dosage: 50 UG, 1X/DAY

REACTIONS (1)
  - Tooth disorder [Unknown]
